FAERS Safety Report 7290394-4 (Version None)
Quarter: 2011Q1

REPORT INFORMATION
  Report Type: 
  Country: None (occurrence: None)
  Receive Date: 20110214
  Receipt Date: 20110203
  Transmission Date: 20110831
  Serious: Yes (Other)
  Sender: FDA-Public Use
  Company Number: US-RB-020292-11

PATIENT
  Age: 86 Year
  Sex: Female

DRUGS (1)
  1. MUCINEX DM [Suspect]
     Dosage: PATIENT MAY HAVE TAKEN 1 TABLET PER DOSE FOR 2 DAYS,THEN 2 TABLETS ON THE THIRD DAY,4 DOSES IN TOTAL
     Route: 048

REACTIONS (1)
  - HAEMOPTYSIS [None]
